FAERS Safety Report 5777334-1 (Version None)
Quarter: 2008Q2

REPORT INFORMATION
  Report Type: 
  Country: None (occurrence: None)
  Receive Date: 20080618
  Receipt Date: 20080609
  Transmission Date: 20081010
  Serious: Yes (Hospitalization, Other)
  Sender: FDA-Public Use
  Company Number: PHBS2008US04732

PATIENT
  Age: 43 Year
  Sex: Male

DRUGS (6)
  1. CYCLOSPORINE [Suspect]
     Indication: STEM CELL TRANSPLANT
     Dosage: UNK
     Dates: start: 20060501
  2. CYCLOSPORINE [Suspect]
     Indication: PROPHYLAXIS AGAINST GRAFT VERSUS HOST DISEASE
  3. METHOTREXATE [Suspect]
     Indication: PROPHYLAXIS AGAINST GRAFT VERSUS HOST DISEASE
  4. CYCLOPHOSPHAMIDE [Concomitant]
  5. BUSULFAN [Concomitant]
  6. ANTITHYMOCYTE IMMUNOGLOBULIN [Concomitant]

REACTIONS (4)
  - HAEMODIALYSIS [None]
  - MUCOSAL INFLAMMATION [None]
  - RENAL FAILURE [None]
  - RENAL FAILURE CHRONIC [None]
